FAERS Safety Report 6401205-0 (Version None)
Quarter: 2009Q4

REPORT INFORMATION
  Report Type: 
  Country: None (occurrence: None)
  Receive Date: 20091015
  Receipt Date: 20090923
  Transmission Date: 20100525
  Serious: No
  Sender: FDA-Public Use
  Company Number: JP-ROCHE-660010

PATIENT
  Age: 42 Year
  Sex: Female

DRUGS (1)
  1. TAMIFLU [Suspect]
     Indication: INFLUENZA
     Dosage: STOP DATE: SEPTEMBER 2009
     Route: 048
     Dates: start: 20090921

REACTIONS (1)
  - ACCIDENTAL OVERDOSE [None]
